FAERS Safety Report 7323044-9 (Version None)
Quarter: 2011Q1

REPORT INFORMATION
  Report Type: 
  Country: None (occurrence: None)
  Receive Date: 20110301
  Receipt Date: 20110117
  Transmission Date: 20110831
  Serious: Yes (Hospitalization)
  Sender: FDA-Public Use
  Company Number: US-JNJFOC-20110204458

PATIENT
  Age: 34 Year
  Sex: Male

DRUGS (6)
  1. LITHIUM [Suspect]
     Route: 065
  2. HALOPERIDOL [Suspect]
     Route: 065
  3. LITHIUM [Suspect]
     Indication: BIPOLAR DISORDER
     Route: 065
  4. LITHIUM [Suspect]
     Route: 065
  5. HALOPERIDOL [Suspect]
     Indication: BIPOLAR DISORDER
     Route: 065
  6. HALOPERIDOL [Suspect]
     Route: 065

REACTIONS (18)
  - DYSARTHRIA [None]
  - ANTISOCIAL BEHAVIOUR [None]
  - ATAXIA [None]
  - IRRITABILITY [None]
  - WHITE BLOOD CELL COUNT INCREASED [None]
  - MEMORY IMPAIRMENT [None]
  - BLOOD CREATINE PHOSPHOKINASE INCREASED [None]
  - HOSTILITY [None]
  - DISTURBANCE IN ATTENTION [None]
  - TREMOR [None]
  - COGWHEEL RIGIDITY [None]
  - URINARY INCONTINENCE [None]
  - NO THERAPEUTIC RESPONSE [None]
  - MOTOR DYSFUNCTION [None]
  - HYPERHIDROSIS [None]
  - PSYCHOMOTOR HYPERACTIVITY [None]
  - PRESSURE OF SPEECH [None]
  - TOXICITY TO VARIOUS AGENTS [None]
